FAERS Safety Report 8820646 (Version 4)
Quarter: 2012Q4

REPORT INFORMATION
  Report Type: 
  Country: JP (occurrence: JP)
  Receive Date: 20121002
  Receipt Date: 20121220
  Transmission Date: 20130627
  Serious: Yes (Life-Threatening, Hospitalization, Other)
  Sender: FDA-Public Use
  Company Number: JP-ASTRAZENECA-2012SE75392

PATIENT
  Sex: Female

DRUGS (3)
  1. SEROQUEL [Suspect]
     Route: 048
  2. REFLEX [Concomitant]
  3. ROHYPNOL [Concomitant]

REACTIONS (2)
  - Cardiac arrest [Not Recovered/Not Resolved]
  - Intentional drug misuse [Unknown]
